FAERS Safety Report 24845535 (Version 3)
Quarter: 2025Q2

REPORT INFORMATION
  Report Type: Spontaneous
  Country: FR (occurrence: FR)
  Receive Date: 20250115
  Receipt Date: 20250624
  Transmission Date: 20250716
  Serious: Yes (Other)
  Sender: PFIZER
  Company Number: None

PATIENT
  Age: 66 Year
  Sex: Female

DRUGS (3)
  1. FLUCONAZOLE [Suspect]
     Active Substance: FLUCONAZOLE
     Indication: Intervertebral discitis
     Route: 042
     Dates: start: 20240710, end: 20240806
  2. MEROPENEM [Suspect]
     Active Substance: MEROPENEM
     Indication: Infection
     Route: 048
     Dates: start: 20240801, end: 20240812
  3. TEICOPLANIN [Suspect]
     Active Substance: TEICOPLANIN
     Indication: Infection
     Route: 048
     Dates: start: 20240801

REACTIONS (4)
  - Condition aggravated [Recovered/Resolved]
  - Cholestasis [Recovered/Resolved]
  - Off label use [Unknown]
  - Off label use [Unknown]

NARRATIVE: CASE EVENT DATE: 20240710
